FAERS Safety Report 11295869 (Version 1)
Quarter: 2015Q3

REPORT INFORMATION
  Report Type: Spontaneous
  Country: US (occurrence: US)
  Receive Date: 20150722
  Receipt Date: 20150722
  Transmission Date: 20151125
  Serious: No
  Sender: FDA-Public Use
  Company Number: US-ELI_LILLY_AND_COMPANY-US200909000064

PATIENT
  Age: 73 Year
  Sex: Female

DRUGS (4)
  1. EVISTA [Suspect]
     Active Substance: RALOXIFENE HYDROCHLORIDE
     Dosage: UNK, UNKNOWN
     Route: 065
     Dates: start: 2002
  2. CRESTOR [Concomitant]
     Active Substance: ROSUVASTATIN CALCIUM
  3. BABY ASPIRIN [Concomitant]
     Active Substance: ASPIRIN
  4. AMLODIPINE [Concomitant]
     Active Substance: AMLODIPINE BESYLATE

REACTIONS (2)
  - Tooth extraction [Recovering/Resolving]
  - Hot flush [Not Recovered/Not Resolved]

NARRATIVE: CASE EVENT DATE: 2002
